FAERS Safety Report 6278142-8 (Version None)
Quarter: 2009Q3

REPORT INFORMATION
  Report Type: 
  Country: None (occurrence: None)
  Receive Date: 20090722
  Receipt Date: 20070907
  Transmission Date: 20100115
  Serious: Yes (Other)
  Sender: FDA-Public Use
  Company Number: US-ASTRAZENECA-2006UW27938

PATIENT
  Age: 17949 Day
  Sex: Female
  Weight: 112.5 kg

DRUGS (19)
  1. SEROQUEL [Suspect]
     Indication: SLEEP APNOEA SYNDROME
     Route: 048
     Dates: start: 20020528, end: 20030601
  2. SEROQUEL [Suspect]
     Indication: DEPRESSION
     Route: 048
     Dates: start: 20020528, end: 20030601
  3. SEROQUEL [Suspect]
     Route: 048
     Dates: start: 20020528
  4. SEROQUEL [Suspect]
     Route: 048
     Dates: start: 20020528
  5. SEROQUEL [Suspect]
     Route: 048
     Dates: start: 20021011
  6. SEROQUEL [Suspect]
     Route: 048
     Dates: start: 20021011
  7. REDUX [Concomitant]
  8. GEODON [Concomitant]
  9. AMBIEN [Concomitant]
     Dosage: 5MG -20MG
     Dates: start: 19960129
  10. LAMICTAL [Concomitant]
     Dates: start: 20050110
  11. LIPITOR [Concomitant]
     Dates: start: 20020801
  12. LODINE [Concomitant]
     Dates: start: 19960826
  13. LOPID [Concomitant]
     Dates: start: 20010212
  14. METFORMIN HCL [Concomitant]
     Dosage: 5MG-500MG
     Dates: start: 20050711
  15. PROZAC [Concomitant]
     Dates: start: 19910606
  16. SKELAXIN [Concomitant]
     Dates: start: 20040224
  17. SYNTHROID [Concomitant]
     Dosage: 25UG - 100UG
     Dates: start: 20040224
  18. WELLBUTRIN SR [Concomitant]
     Dates: start: 19910606
  19. ZOLOFT [Concomitant]
     Dosage: 50MG-150MG
     Dates: start: 20020530

REACTIONS (10)
  - BLOOD CHOLESTEROL INCREASED [None]
  - BLOOD GLUCOSE INCREASED [None]
  - BLOOD TRIGLYCERIDES INCREASED [None]
  - DIABETES MELLITUS [None]
  - DYSPNOEA [None]
  - HYPERGLYCAEMIA [None]
  - INTERVERTEBRAL DISC OPERATION [None]
  - NEOPLASM SKIN [None]
  - OBESITY [None]
  - TYPE 2 DIABETES MELLITUS [None]
